FAERS Safety Report 13953300 (Version 1)
Quarter: 2017Q3

REPORT INFORMATION
  Report Type: Spontaneous
  Country: US (occurrence: None)
  Receive Date: 20170908
  Receipt Date: 20170908
  Transmission Date: 20171128
  Serious: No
  Sender: FDA-Public Use
  Company Number: None

PATIENT
  Sex: Female

DRUGS (1)
  1. HUMIRA [Suspect]
     Active Substance: ADALIMUMAB
     Indication: ARTERITIS
     Dosage: 40MG EVERY TWO WEEKS
     Route: 058
     Dates: start: 20170725

REACTIONS (2)
  - Mental status changes [None]
  - Depression [None]
